FAERS Safety Report 12555549 (Version 1)
Quarter: 2016Q3

REPORT INFORMATION
  Report Type: Spontaneous
  Country: US (occurrence: None)
  Receive Date: 20160713
  Receipt Date: 20160713
  Transmission Date: 20161109
  Serious: No
  Sender: FDA-Public Use
  Company Number: None

PATIENT
  Age: 78 Year
  Sex: Male

DRUGS (2)
  1. LONSURF [Suspect]
     Active Substance: TIPIRACIL HYDROCHLORIDE\TRIFLURIDINE
     Indication: RECTAL CANCER
     Dosage: 20 MG BID DAYS 1-5 + 8-12 PO
     Route: 048
     Dates: start: 20160524
  2. LONSURF [Suspect]
     Active Substance: TIPIRACIL HYDROCHLORIDE\TRIFLURIDINE
     Indication: RECTAL CANCER
     Dosage: 45 MG BID DAYS 1-5 + 8-12 PO
     Route: 048
     Dates: start: 20160524

REACTIONS (2)
  - Fatigue [None]
  - Cell marker increased [None]

NARRATIVE: CASE EVENT DATE: 2016
